FAERS Safety Report 5006370-8 (Version None)
Quarter: 2006Q2

REPORT INFORMATION
  Report Type: 
  Country: None (occurrence: None)
  Receive Date: 20060519
  Receipt Date: 20060509
  Transmission Date: 20061013
  Serious: Yes (Other)
  Sender: FDA-Public Use
  Company Number: PHBS2006AR06898

PATIENT
  Age: 37 Year
  Sex: Female

DRUGS (1)
  1. CLOZAPINE [Suspect]
     Indication: PSYCHOTIC DISORDER
     Route: 065

REACTIONS (9)
  - AKINESIA [None]
  - BRADYKINESIA [None]
  - GAIT DISTURBANCE [None]
  - LIMB DISCOMFORT [None]
  - MASKED FACIES [None]
  - MUSCLE RIGIDITY [None]
  - PARKINSONISM [None]
  - STARING [None]
  - ULTRASOUND SCAN ABNORMAL [None]
